FAERS Safety Report 14282792 (Version 2)
Quarter: 2018Q1

REPORT INFORMATION
  Report Type: Spontaneous
  Country: US (occurrence: US)
  Receive Date: 20171213
  Receipt Date: 20180226
  Transmission Date: 20180508
  Serious: No
  Sender: FDA-Public Use
  Company Number: US-PFIZER INC-2017530946

PATIENT
  Age: 52 Year
  Sex: Female
  Weight: 61.23 kg

DRUGS (2)
  1. PREMARIN [Suspect]
     Active Substance: ESTROGENS, CONJUGATED
     Indication: VULVOVAGINAL DRYNESS
     Dosage: 0.5G ONCE WEEKLY INSERTED VAGINALLY
     Route: 067
     Dates: start: 2017
  2. PREMARIN [Suspect]
     Active Substance: ESTROGENS, CONJUGATED
     Dosage: UNK, THREE TIMES A WEEK
     Route: 067

REACTIONS (5)
  - Drug ineffective [Unknown]
  - Vaginal infection [Recovered/Resolved]
  - Product use issue [Unknown]
  - Disease recurrence [Recovered/Resolved]
  - Smear cervix abnormal [Unknown]

NARRATIVE: CASE EVENT DATE: 2017
